FAERS Safety Report 4881359-8 (Version None)
Quarter: 2006Q1

REPORT INFORMATION
  Report Type: 
  Country: None (occurrence: None)
  Receive Date: 20060111
  Receipt Date: 20060111
  Transmission Date: 20060701
  Serious: Yes (Hospitalization)
  Sender: FDA-Public Use
  Company Number: None

PATIENT
  Age: 47 Year
  Sex: Male
  Weight: 52.1637 kg

DRUGS (4)
  1. GEMCITABINE [Suspect]
     Indication: LARYNGEAL CANCER
     Dosage: 1000 MG/M2 DAYS 1 + 8 Q 21 DAYS
     Dates: start: 20051017, end: 20051227
  2. GEMCITABINE [Suspect]
     Indication: METASTASIS
     Dosage: 1000 MG/M2 DAYS 1 + 8 Q 21 DAYS
     Dates: start: 20051017, end: 20051227
  3. DOXORUBICIN [Suspect]
     Indication: LARYNGEAL CANCER
     Dosage: 25 MG/M2 DAYS 1 + 8 Q 21 DAYS
     Dates: start: 20051017, end: 20051227
  4. DOXORUBICIN [Suspect]
     Indication: METASTASIS
     Dosage: 25 MG/M2 DAYS 1 + 8 Q 21 DAYS
     Dates: start: 20051017, end: 20051227

REACTIONS (3)
  - DYSPHAGIA [None]
  - PNEUMONIA ASPIRATION [None]
  - TREATMENT NONCOMPLIANCE [None]
